FAERS Safety Report 24304916 (Version 2)
Quarter: 2025Q2

REPORT INFORMATION
  Report Type: Report from Study
  Country: US (occurrence: US)
  Receive Date: 20240911
  Receipt Date: 20250403
  Transmission Date: 20250717
  Serious: Yes (Other)
  Sender: ABBVIE
  Company Number: US-ABBVIE-5909777

PATIENT
  Age: 77 Year
  Sex: Female
  Weight: 58.966 kg

DRUGS (9)
  1. RINVOQ [Suspect]
     Active Substance: UPADACITINIB
     Indication: Rheumatoid arthritis
     Dosage: FORM STRENGTH: 15 MILLIGRAM
     Route: 048
     Dates: start: 2022
  2. MODAFINIL [Concomitant]
     Active Substance: MODAFINIL
     Indication: Asthenia
  3. VITAMIN D3 [Concomitant]
     Active Substance: CHOLECALCIFEROL
     Indication: Vitamin supplementation
  4. IBUPROFEN [Concomitant]
     Active Substance: IBUPROFEN
     Indication: Inflammation
     Dosage: FORM STRENGTH: 800  MILLIGRAM
  5. OXYCONTIN [Concomitant]
     Active Substance: OXYCODONE HYDROCHLORIDE
     Indication: Pain
     Dosage: FORM STRENGTH: 30 MILLIGRAM
  6. LISINOPRIL [Concomitant]
     Active Substance: LISINOPRIL
     Indication: Blood pressure abnormal
  7. PRAVASTATIN [Concomitant]
     Active Substance: PRAVASTATIN
     Indication: Blood pressure abnormal
  8. DULOXETINE [Concomitant]
     Active Substance: DULOXETINE
     Indication: Gastrooesophageal reflux disease
     Dosage: FORM STRENGTH: 60  MILLIGRAM
  9. OMEPRAZOLE [Concomitant]
     Active Substance: OMEPRAZOLE
     Indication: Gastrooesophageal reflux disease
     Dosage: FORM STRENGTH: 40 MILLIGRAM

REACTIONS (5)
  - Rotator cuff syndrome [Recovered/Resolved]
  - Mobility decreased [Recovered/Resolved]
  - Road traffic accident [Unknown]
  - Joint range of motion decreased [Recovered/Resolved]
  - Osteoporosis [Recovering/Resolving]

NARRATIVE: CASE EVENT DATE: 20230101
